FAERS Safety Report 6149331-8 (Version None)
Quarter: 2009Q2

REPORT INFORMATION
  Report Type: 
  Country: None (occurrence: None)
  Receive Date: 20090406
  Receipt Date: 20090406
  Transmission Date: 20091009
  Serious: Yes (Life-Threatening, Hospitalization)
  Sender: FDA-Public Use
  Company Number: None

PATIENT
  Sex: Male
  Weight: 80.7403 kg

DRUGS (2)
  1. SEROQUEL [Suspect]
     Indication: PSYCHOTIC DISORDER
     Dosage: 300MG 3X PER DAY
     Dates: start: 20040101, end: 20061229
  2. SEROQUEL [Suspect]
     Indication: SCHIZOPHRENIA
     Dosage: 300MG 3X PER DAY
     Dates: start: 20040101, end: 20061229

REACTIONS (8)
  - ARRHYTHMIA [None]
  - CEREBROVASCULAR ACCIDENT [None]
  - FEAR [None]
  - HYPERSENSITIVITY [None]
  - ILL-DEFINED DISORDER [None]
  - NERVOUS SYSTEM DISORDER [None]
  - PANIC ATTACK [None]
  - TARDIVE DYSKINESIA [None]
